FAERS Safety Report 8447516-9 (Version None)
Quarter: 2012Q2

REPORT INFORMATION
  Report Type: 
  Country: None (occurrence: None)
  Receive Date: 20120619
  Receipt Date: 20120607
  Transmission Date: 20120825
  Serious: Yes (Hospitalization)
  Sender: FDA-Public Use
  Company Number: US-ELI_LILLY_AND_COMPANY-US201206003314

PATIENT
  Sex: Female

DRUGS (1)
  1. FORTEO [Suspect]
     Indication: OSTEOPOROSIS
     Dosage: 20 U, QD
     Dates: start: 20120518

REACTIONS (8)
  - SOMNOLENCE [None]
  - CARDIAC FAILURE [None]
  - CARDIAC DISORDER [None]
  - HALLUCINATION [None]
  - VOMITING [None]
  - URINARY TRACT INFECTION [None]
  - MALAISE [None]
  - LETHARGY [None]
